FAERS Safety Report 21499111 (Version 4)
Quarter: 2022Q4

REPORT INFORMATION
  Report Type: Report from Study
  Country: FR (occurrence: None)
  Receive Date: 20221024
  Receipt Date: 20221220
  Transmission Date: 20230113
  Serious: Yes (Life-Threatening, Other)
  Sender: FDA-Public Use
  Company Number: 2022A263647

PATIENT
  Age: 475 Month
  Sex: Female
  Weight: 45 kg

DRUGS (3)
  1. EVUSHELD [Suspect]
     Active Substance: CILGAVIMAB\TIXAGEVIMAB
     Indication: COVID-19 prophylaxis
     Dosage: DOSE UNKNOWN; ONCE
     Route: 030
     Dates: start: 20220110
  2. EVUSHELD [Suspect]
     Active Substance: CILGAVIMAB\TIXAGEVIMAB
     Indication: COVID-19 prophylaxis
     Dosage: UNSPECIFIED DOSAGE; ONCE
     Route: 030
     Dates: start: 20220922
  3. OCREVUS [Concomitant]
     Active Substance: OCRELIZUMAB
     Indication: Immunosuppressant drug therapy

REACTIONS (2)
  - Breast cancer [Not Recovered/Not Resolved]
  - COVID-19 [Unknown]

NARRATIVE: CASE EVENT DATE: 20220125
